FAERS Safety Report 12692761 (Version 1)
Quarter: 2016Q3

REPORT INFORMATION
  Report Type: Spontaneous
  Country: US (occurrence: None)
  Receive Date: 20160826
  Receipt Date: 20160826
  Transmission Date: 20161109
  Serious: No
  Sender: FDA-Public Use
  Company Number: None

PATIENT

DRUGS (2)
  1. PREDNISONE 40MG [Suspect]
     Active Substance: PREDNISONE
  2. PREDNISONE 10MG [Suspect]
     Active Substance: PREDNISONE

REACTIONS (2)
  - Drug prescribing error [None]
  - Incorrect drug dosage form administered [None]
